FAERS Safety Report 6377696-0 (Version None)
Quarter: 2009Q3

REPORT INFORMATION
  Report Type: 
  Country: None (occurrence: None)
  Receive Date: 20090925
  Receipt Date: 20090917
  Transmission Date: 20100115
  Serious: Yes (Other)
  Sender: FDA-Public Use
  Company Number: US-AVENTIS-200918410US

PATIENT
  Sex: Male
  Weight: 99.09 kg

DRUGS (5)
  1. LANTUS [Suspect]
     Dosage: DOSE: UNK
     Route: 051
  2. LANTUS [Suspect]
     Route: 051
  3. HUMALOG [Concomitant]
     Dosage: DOSE: SLIDING SCALE
  4. XANAX [Concomitant]
     Dosage: DOSE: UNK
  5. ASPIRIN [Concomitant]

REACTIONS (11)
  - ANXIETY [None]
  - GAIT DISTURBANCE [None]
  - MOVEMENT DISORDER [None]
  - MUSCLE SPASMS [None]
  - MUSCLE TIGHTNESS [None]
  - MUSCULOSKELETAL STIFFNESS [None]
  - NERVOUSNESS [None]
  - SENSORY DISTURBANCE [None]
  - STIFF-MAN SYNDROME [None]
  - STRESS [None]
  - WEIGHT INCREASED [None]
